FAERS Safety Report 12590591 (Version 1)
Quarter: 2016Q3

REPORT INFORMATION
  Report Type: Spontaneous
  Country: JP (occurrence: JP)
  Receive Date: 20160725
  Receipt Date: 20160725
  Transmission Date: 20161109
  Serious: No
  Sender: FDA-Public Use
  Company Number: JP-LUPIN PHARMACEUTICALS INC.-2016-00345

PATIENT
  Age: 69 Year
  Sex: Female

DRUGS (5)
  1. SISAAL [Concomitant]
     Active Substance: DEXTROMETHORPHAN HYDROBROMIDE
     Indication: NASOPHARYNGITIS
     Route: 048
     Dates: start: 20160105
  2. CARBOCISTEINE [Concomitant]
     Active Substance: CARBOCYSTEINE
     Indication: NASOPHARYNGITIS
     Route: 048
     Dates: start: 20160105
  3. SEKINARIN [Concomitant]
     Active Substance: TULOBUTEROL
     Indication: NASOPHARYNGITIS
     Route: 048
     Dates: start: 20160105
  4. LEVOFLOXACIN TAB 500MG ^AMEL^ [Suspect]
     Active Substance: LEVOFLOXACIN
     Indication: NASOPHARYNGITIS
     Route: 048
     Dates: start: 20160105, end: 20160106
  5. MEQUITAZINE [Concomitant]
     Active Substance: MEQUITAZINE
     Indication: NASOPHARYNGITIS
     Route: 048
     Dates: start: 20160105

REACTIONS (1)
  - Insomnia [Recovered/Resolved]

NARRATIVE: CASE EVENT DATE: 20160105
